FAERS Safety Report 18710193 (Version 2)
Quarter: 2022Q2

REPORT INFORMATION
  Report Type: Other
  Country: CN (occurrence: None)
  Receive Date: 20210106
  Receipt Date: 20220512
  Transmission Date: 20220721
  Serious: Yes (Death)
  Sender: FDA-Public Use
  Company Number: CN-ROCHE-2745173

PATIENT
  Age: 5 Year
  Sex: Female

DRUGS (2)
  1. RITUXIMAB [Suspect]
     Active Substance: RITUXIMAB
     Indication: Encephalitis autoimmune
     Dosage: FOR 4 WEEK
     Route: 042
  2. METHYLPREDNISOLONE [Concomitant]
     Active Substance: METHYLPREDNISOLONE
     Dosage: 15-30 MG/KG PER DAY FOR 3-5 DAYS

REACTIONS (4)
  - Pneumonia [Fatal]
  - Pneumonia bacterial [Fatal]
  - Respiratory failure [Fatal]
  - Off label use [Unknown]
